FAERS Safety Report 7375725-9 (Version None)
Quarter: 2011Q1

REPORT INFORMATION
  Report Type: 
  Country: None (occurrence: None)
  Receive Date: 20110325
  Receipt Date: 20110315
  Transmission Date: 20110831
  Serious: Yes (Death)
  Sender: FDA-Public Use
  Company Number: US-WATSON-2011-01846

PATIENT
  Sex: Female
  Weight: 71.202 kg

DRUGS (6)
  1. ZANAFLEX [Concomitant]
     Indication: MUSCLE SPASMS
  2. VALIUM [Concomitant]
     Indication: PRODUCT USED FOR UNKNOWN INDICATION
  3. PROZAC [Concomitant]
     Indication: PRODUCT USED FOR UNKNOWN INDICATION
  4. FENTANYL-50 [Suspect]
     Indication: PRODUCT USED FOR UNKNOWN INDICATION
     Dosage: UNK
     Route: 062
     Dates: start: 20100220, end: 20100220
  5. AMBIEN [Concomitant]
     Indication: PRODUCT USED FOR UNKNOWN INDICATION
  6. ZOFRAN [Concomitant]
     Indication: NAUSEA

REACTIONS (4)
  - CARDIAC ARREST [None]
  - ACCIDENTAL OVERDOSE [None]
  - HEPATIC STEATOSIS [None]
  - RESPIRATORY ARREST [None]
